FAERS Safety Report 5537083-1 (Version None)
Quarter: 2007Q4

REPORT INFORMATION
  Report Type: 
  Country: None (occurrence: None)
  Receive Date: 20071120
  Receipt Date: 20070117
  Transmission Date: 20080405
  Serious: Yes (Other)
  Sender: FDA-Public Use
  Company Number: 33716

PATIENT
  Age: 51 Year
  Sex: Male

DRUGS (1)
  1. METHOTREXATE [Suspect]
     Indication: LEUKAEMIA
     Dosage: 200MG/M2 OVER 2HRS; 800MG/M

REACTIONS (1)
  - VISION BLURRED [None]
